FAERS Safety Report 23741747 (Version 1)
Quarter: 2024Q2

REPORT INFORMATION
  Report Type: Spontaneous
  Country: JP (occurrence: None)
  Receive Date: 20240415
  Receipt Date: 20240415
  Transmission Date: 20240715
  Serious: Yes (Death, Hospitalization, Other)
  Sender: FDA-Public Use
  Company Number: JP-Unichem Pharmaceuticals (USA) Inc-UCM202404-000387

PATIENT
  Age: 28 Year
  Sex: Female

DRUGS (1)
  1. CARBAMAZEPINE [Suspect]
     Active Substance: CARBAMAZEPINE
     Indication: Hypoaesthesia

REACTIONS (13)
  - Multiple organ dysfunction syndrome [Fatal]
  - Thrombosis [Unknown]
  - Giant cell myocarditis [Not Recovered/Not Resolved]
  - Cardiac arrest [Not Recovered/Not Resolved]
  - Pulmonary oedema [Unknown]
  - Traumatic haemothorax [Fatal]
  - Sepsis [Fatal]
  - Unresponsive to stimuli [Recovered/Resolved]
  - Ventricular fibrillation [Unknown]
  - Ventricular arrhythmia [Unknown]
  - Haemorrhage [Fatal]
  - Pneumonia [Fatal]
  - Drug reaction with eosinophilia and systemic symptoms [Recovered/Resolved]
